FAERS Safety Report 8585671 (Version 6)
Quarter: 2013Q2

REPORT INFORMATION
  Report Type: Spontaneous
  Country: US (occurrence: US)
  Receive Date: 20120907
  Receipt Date: 20130522
  Transmission Date: 20140414
  Serious: Yes (Hospitalization, Other)
  Sender: FDA-Public Use
  Company Number: US-GLAXOSMITHKLINE-A0968235A

PATIENT
  Age: 48 Year
  Sex: Male

DRUGS (7)
  1. FLOLAN [Suspect]
     Indication: PORTAL HYPERTENSION
     Dosage: 13NGKM CONTINUOUS
     Route: 042
     Dates: start: 20081024
  2. REVATIO [Suspect]
     Dosage: 20MG THREE TIMES PER DAY
  3. PROGRAF [Concomitant]
  4. BACTRIM [Concomitant]
  5. ASPIRIN [Concomitant]
  6. VITAMIN [Concomitant]
  7. UNKNOWN MEDICATION [Concomitant]

REACTIONS (9)
  - Mouth ulceration [Unknown]
  - Lung infection [Unknown]
  - Liver transplant [Recovering/Resolving]
  - Pulmonary arterial pressure increased [Unknown]
  - Dyspnoea [Unknown]
  - Headache [Unknown]
  - Blood pressure increased [Unknown]
  - Medical device complication [Recovering/Resolving]
  - Hypertension [Recovering/Resolving]
